FAERS Safety Report 7865349-9 (Version None)
Quarter: 2011Q4

REPORT INFORMATION
  Report Type: 
  Country: None (occurrence: None)
  Receive Date: 20111028
  Receipt Date: 20101130
  Transmission Date: 20120403
  Serious: No
  Sender: FDA-Public Use
  Company Number: US-GLAXOSMITHKLINE-A0896978A

PATIENT
  Sex: Female

DRUGS (1)
  1. ADVAIR DISKUS 100/50 [Suspect]
     Indication: BRONCHITIS CHRONIC
     Dosage: 1PUFF TWICE PER DAY
     Route: 055
     Dates: start: 20090201

REACTIONS (4)
  - VULVOVAGINAL MYCOTIC INFECTION [None]
  - FUNGAL INFECTION [None]
  - FUNGAL SKIN INFECTION [None]
  - ORAL FUNGAL INFECTION [None]
